FAERS Safety Report 8474516-5 (Version None)
Quarter: 2012Q2

REPORT INFORMATION
  Report Type: 
  Country: None (occurrence: None)
  Receive Date: 20120628
  Receipt Date: 20120627
  Transmission Date: 20120825
  Serious: Yes (Other)
  Sender: FDA-Public Use
  Company Number: PHHY2012AU055058

PATIENT
  Sex: Female

DRUGS (1)
  1. FEMARA [Suspect]
     Indication: BREAST CANCER
     Dosage: UNK UKN, UNK
     Route: 048
     Dates: start: 20100701, end: 20120427

REACTIONS (3)
  - NEOPLASM MALIGNANT [None]
  - BONE NEOPLASM MALIGNANT [None]
  - DRUG INEFFECTIVE [None]
